FAERS Safety Report 19276473 (Version 1)
Quarter: 2021Q2

REPORT INFORMATION
  Report Type: Spontaneous
  Country: FR (occurrence: FR)
  Receive Date: 20210520
  Receipt Date: 20210520
  Transmission Date: 20210717
  Serious: Yes (Death, Hospitalization, Other)
  Sender: FDA-Public Use
  Company Number: FR-AUROBINDO-AUR-APL-2021-020813

PATIENT
  Age: 43 Year
  Sex: Female

DRUGS (15)
  1. VORICONAZOLE. [Suspect]
     Active Substance: VORICONAZOLE
     Indication: SALVAGE THERAPY
     Dosage: 800 MILLIGRAM, ONCE A DAY (13 MG/KG ON THE FIRST DAY)
     Route: 042
  2. VORICONAZOLE. [Suspect]
     Active Substance: VORICONAZOLE
     Dosage: 400 MILLIGRAM, ONCE A DAY (6 MG/KG DAILY FROM DAY 22  TO DAY 33)
     Route: 042
  3. CASPOFUNGIN [Suspect]
     Active Substance: CASPOFUNGIN
     Indication: BRONCHOPULMONARY ASPERGILLOSIS
     Dosage: 50 MILLIGRAM, ONCE A DAY
     Route: 065
  4. MYCOPHENOLATE MOFETIL. [Concomitant]
     Active Substance: MYCOPHENOLATE MOFETIL
     Dosage: UNK (DOSE REDUCED FROM DAY 40 UNTIL THE PATIENT^S DEATH)
     Route: 065
  5. VORICONAZOLE. [Suspect]
     Active Substance: VORICONAZOLE
     Indication: BRONCHOPULMONARY ASPERGILLOSIS
     Dosage: 500 MILLIGRAM, ONCE A DAY (8 MG/KG DAILY FROM DAY 34)
     Route: 042
  6. CEFTAZIDIME. [Concomitant]
     Active Substance: CEFTAZIDIME
     Indication: PNEUMONIA PSEUDOMONAL
     Dosage: UNK
     Route: 065
  7. GANCICLOVIR. [Concomitant]
     Active Substance: GANCICLOVIR
     Indication: ANTIVIRAL PROPHYLAXIS
     Dosage: UNK
     Route: 065
  8. PREDNISOLONE. [Concomitant]
     Active Substance: PREDNISOLONE
     Indication: IMMUNOSUPPRESSANT DRUG THERAPY
     Dosage: UNKNOWN
     Route: 065
  9. CASPOFUNGIN [Suspect]
     Active Substance: CASPOFUNGIN
     Indication: SALVAGE THERAPY
     Dosage: 70 MILLIGRAM (ON THE FIRST DAY)
     Route: 065
  10. FLUCONAZOLE. [Concomitant]
     Active Substance: FLUCONAZOLE
     Indication: BRONCHITIS
     Dosage: 400 MILLIGRAM, ONCE A DAY
     Route: 042
  11. MYCOPHENOLATE MOFETIL. [Concomitant]
     Active Substance: MYCOPHENOLATE MOFETIL
     Indication: IMMUNOSUPPRESSANT DRUG THERAPY
     Dosage: UNK
     Route: 065
  12. TACROLIMUS. [Concomitant]
     Active Substance: TACROLIMUS
     Indication: IMMUNOSUPPRESSANT DRUG THERAPY
     Dosage: UNK
     Route: 065
  13. TACROLIMUS. [Concomitant]
     Active Substance: TACROLIMUS
     Dosage: UNK (DOSE REDUCED FROM DAY 40 UNTIL THE PATIENT^S DEATH)
     Route: 065
  14. AMIKACIN. [Concomitant]
     Active Substance: AMIKACIN
     Indication: PNEUMONIA PSEUDOMONAL
     Dosage: UNK
     Route: 065
  15. PREDNISOLONE. [Concomitant]
     Active Substance: PREDNISOLONE
     Dosage: UNK (DOSE REDUCED FROM DAY 40 UNTIL THE PATIENT^S DEATH)
     Route: 065

REACTIONS (1)
  - Drug ineffective [Fatal]
